FAERS Safety Report 4546589-3 (Version None)
Quarter: 2005Q1

REPORT INFORMATION
  Report Type: 
  Country: None (occurrence: None)
  Receive Date: 20050103
  Receipt Date: 20041213
  Transmission Date: 20050727
  Serious: Yes (Other)
  Sender: FDA-Public Use
  Company Number: GBS041216118

PATIENT
  Age: 13 Year
  Sex: Male
  Weight: 90 kg

DRUGS (4)
  1. STRATTERA [Suspect]
     Indication: AGGRESSION
     Dosage: 60 MG/1 DAY
     Dates: start: 20041101
  2. STRATTERA [Suspect]
     Indication: ATTENTION DEFICIT/HYPERACTIVITY DISORDER
     Dosage: 60 MG/1 DAY
     Dates: start: 20041101
  3. ACETAMINOPHEN [Concomitant]
  4. IBUPROFEN [Concomitant]

REACTIONS (2)
  - LIVER DISORDER [None]
  - LIVER FUNCTION TEST ABNORMAL [None]
